FAERS Safety Report 9359177 (Version 2)
Quarter: 2013Q2

REPORT INFORMATION
  Report Type: Spontaneous
  Country: JP (occurrence: None)
  Receive Date: 20130617
  Receipt Date: 20130625
  Transmission Date: 20140414
  Serious: Yes (Other)
  Sender: FDA-Public Use
  Company Number: ADR-2013-00998

PATIENT
  Age: 19 Year
  Sex: Male

DRUGS (1)
  1. GABALON [Suspect]
     Dates: start: 20121001, end: 20130422

REACTIONS (1)
  - Decubitus ulcer [None]
